FAERS Safety Report 7031328-7 (Version None)
Quarter: 2010Q4

REPORT INFORMATION
  Report Type: 
  Country: None (occurrence: None)
  Receive Date: 20101006
  Receipt Date: 20100924
  Transmission Date: 20110411
  Serious: Yes (Hospitalization)
  Sender: FDA-Public Use
  Company Number: US-AMGEN-KDL442586

PATIENT
  Sex: Female
  Weight: 102.2 kg

DRUGS (4)
  1. PROCRIT [Suspect]
     Indication: RENAL FAILURE CHRONIC
     Route: 058
     Dates: start: 20100901
  2. IMMUNOSUPPRESSANTS [Concomitant]
  3. UNSPECIFIED ANTIHYPERTENSIVE AGENT [Concomitant]
  4. INSULIN [Concomitant]
     Route: 058

REACTIONS (2)
  - CARDIAC FAILURE [None]
  - FLUID RETENTION [None]
